FAERS Safety Report 8986890 (Version 1)
Quarter: 2012Q4

REPORT INFORMATION
  Report Type: 
  Country: FR (occurrence: FR)
  Receive Date: 20121226
  Receipt Date: 20121226
  Transmission Date: 20130627
  Serious: Yes (Hospitalization)
  Sender: FDA-Public Use
  Company Number: FR-ROCHE-1173300

PATIENT
  Age: 32 Year
  Sex: Female

DRUGS (7)
  1. VALIUM [Suspect]
     Indication: PRODUCT USED FOR UNKNOWN INDICATION
     Route: 065
     Dates: start: 20120520, end: 20120612
  2. ROCEPHINE [Suspect]
     Indication: PRODUCT USED FOR UNKNOWN INDICATION
     Route: 065
     Dates: start: 20120605, end: 20120610
  3. TEGRETOL [Suspect]
     Indication: PRODUCT USED FOR UNKNOWN INDICATION
     Route: 065
     Dates: start: 20120524, end: 20120612
  4. OGASTORO [Concomitant]
     Route: 065
     Dates: start: 20120602
  5. AMIKLIN [Concomitant]
     Route: 065
  6. CLOBAZAM [Concomitant]
     Indication: EPILEPSY
     Route: 065
  7. LAMOTRIGINE [Concomitant]
     Indication: EPILEPSY
     Route: 065

REACTIONS (1)
  - Rash [Recovered/Resolved]
